FAERS Safety Report 16159136 (Version 2)
Quarter: 2019Q2

REPORT INFORMATION
  Report Type: Spontaneous
  Country: FR (occurrence: FR)
  Receive Date: 20190404
  Receipt Date: 20190619
  Transmission Date: 20190711
  Serious: No
  Sender: FDA-Public Use
  Company Number: PHHY2019FR075786

PATIENT
  Age: 79 Year
  Sex: Female

DRUGS (3)
  1. CHIBRO CADRON [Concomitant]
     Active Substance: DEXAMETHASONE SODIUM PHOSPHATE\NEOMYCIN SULFATE
     Indication: POSTOPERATIVE CARE
     Dosage: 2 GTT, TID
     Route: 065
  2. BSS PLUS [Suspect]
     Active Substance: CALCIUM CHLORIDE\DEXTROSE\MAGNESIUM CHLORIDE\OXIGLUTATIONE\POTASSIUM CHLORIDE\SODIUM BICARBONATE\SODIUM CHLORIDE\SODIUM PHOSPHATE\SODIUM PHOSPHATE, DIBASIC
     Indication: PRODUCT USED FOR UNKNOWN INDICATION
     Dosage: UNK
     Route: 065
     Dates: start: 20190301, end: 20190301
  3. INDOCOLLYRE [Concomitant]
     Active Substance: INDOMETHACIN
     Indication: POSTOPERATIVE CARE
     Dosage: 2 GTT, TID
     Route: 065

REACTIONS (3)
  - Corneal oedema [Recovered/Resolved]
  - Product administration error [Unknown]
  - Product quality issue [Unknown]

NARRATIVE: CASE EVENT DATE: 20190303
